FAERS Safety Report 19507161 (Version 1)
Quarter: 2021Q3

REPORT INFORMATION
  Report Type: Spontaneous
  Country: FR (occurrence: FR)
  Receive Date: 20210708
  Receipt Date: 20210708
  Transmission Date: 20211014
  Serious: Yes (Hospitalization, Other)
  Sender: FDA-Public Use
  Company Number: FR-PFM-2021-06864

PATIENT

DRUGS (3)
  1. PROPRANOLOL [Suspect]
     Active Substance: PROPRANOLOL HYDROCHLORIDE
     Indication: POISONING DELIBERATE
     Dosage: SINGLE TAKE
     Route: 048
     Dates: start: 20210512, end: 20210512
  2. LORAZEPAM. [Suspect]
     Active Substance: LORAZEPAM
     Indication: POISONING DELIBERATE
     Dosage: SINGLE TAKE
     Route: 048
     Dates: start: 20210512, end: 20210512
  3. LERCANIDIPINE [Suspect]
     Active Substance: LERCANIDIPINE
     Indication: POISONING DELIBERATE
     Dosage: SINGLE TAKE
     Route: 048
     Dates: start: 20210512, end: 20210512

REACTIONS (6)
  - Product use issue [Unknown]
  - Altered state of consciousness [Recovered/Resolved]
  - Oxygen saturation decreased [Recovered/Resolved]
  - Hypotension [Recovered/Resolved]
  - Off label use [Unknown]
  - Poisoning deliberate [Unknown]

NARRATIVE: CASE EVENT DATE: 20210512
